FAERS Safety Report 23976134 (Version 1)
Quarter: 2024Q2

REPORT INFORMATION
  Report Type: Spontaneous
  Country: CH (occurrence: CH)
  Receive Date: 20240614
  Receipt Date: 20240614
  Transmission Date: 20240716
  Serious: Yes (Hospitalization, Other)
  Sender: FDA-Public Use
  Company Number: None

PATIENT
  Age: 75 Year
  Sex: Male
  Weight: 76 kg

DRUGS (13)
  1. TORSEMIDE [Suspect]
     Active Substance: TORSEMIDE
     Indication: Cardiac failure
     Dosage: 50 MILLIGRAM (200 MG TORASEMID PER TABLET)
     Route: 048
  2. ALDACTONE [Suspect]
     Active Substance: SPIRONOLACTONE
     Indication: Product used for unknown indication
     Dosage: 150 MILLIGRAM, QD
     Route: 048
     Dates: start: 202404, end: 20240501
  3. ALDACTONE [Suspect]
     Active Substance: SPIRONOLACTONE
     Dosage: 50 MILLIGRAM, QD
     Route: 048
     Dates: start: 20240502, end: 20240504
  4. PERINDOPRIL [Suspect]
     Active Substance: PERINDOPRIL
     Indication: Cardiac failure
     Dosage: 4 NANOGRAM, QD
     Route: 048
  5. METOLAZONE [Suspect]
     Active Substance: METOLAZONE
     Indication: Cardiac failure
     Dosage: 2.5 MILLIGRAM (5 MG PER TABLET ; AS NECESSARY)
     Route: 048
  6. ELIQUIS [Concomitant]
     Active Substance: APIXABAN
     Indication: Atrial fibrillation
     Dosage: 5 MILLIGRAM, BID
     Route: 048
  7. DAPAGLIFLOZIN [Concomitant]
     Active Substance: DAPAGLIFLOZIN
     Indication: Right ventricular failure
     Dosage: 10 MILLIGRAM
     Route: 048
  8. LOCOID [Concomitant]
     Active Substance: HYDROCORTISONE BUTYRATE
     Dosage: 1 DOSAGE FORM (CREAM CONTAINS 0,1% HYDROCORTISON)
     Route: 003
  9. MAGNESIUM [Concomitant]
     Active Substance: MAGNESIUM
     Dosage: 300 MILLIGRAM
     Route: 048
  10. Novalgin [Concomitant]
     Dosage: 500 MILLIGRAM, QID
     Route: 048
  11. METFORMIN [Concomitant]
     Active Substance: METFORMIN HYDROCHLORIDE
     Indication: Diabetes mellitus
     Dosage: 500 MILLIGRAM, BID
     Route: 048
  12. NEBIVOLOL [Concomitant]
     Active Substance: NEBIVOLOL
     Indication: Cardiac failure
     Dosage: 2.5 MILLIGRAM (5 MG NEBIVOLOL PER TABLET)
     Route: 048
  13. LYRICA [Concomitant]
     Active Substance: PREGABALIN
     Indication: Polyneuropathy
     Dosage: 50 MILLIGRAM, BID
     Route: 048

REACTIONS (3)
  - Hyperkalaemia [Recovered/Resolved]
  - Muscular weakness [Recovering/Resolving]
  - Hyponatraemia [Recovering/Resolving]

NARRATIVE: CASE EVENT DATE: 20240501
